FAERS Safety Report 9223022 (Version 2)
Quarter: 2013Q2

REPORT INFORMATION
  Report Type: Report from Study
  Country: US (occurrence: US)
  Receive Date: 20130410
  Receipt Date: 20130521
  Transmission Date: 20140414
  Serious: Yes (Other)
  Sender: FDA-Public Use
  Company Number: US-ROCHE-1211440

PATIENT
  Age: 76 Year
  Sex: Female

DRUGS (1)
  1. ALTEPLASE [Suspect]
     Indication: COLONIC ABSCESS
     Dosage: 4 MG OR 8 MG
     Route: 013

REACTIONS (2)
  - Abscess intestinal [Recovered/Resolved with Sequelae]
  - Abscess intestinal [Recovered/Resolved with Sequelae]
